FAERS Safety Report 11868576 (Version 1)
Quarter: 2015Q4

REPORT INFORMATION
  Report Type: Spontaneous
  Country: DE (occurrence: DE)
  Receive Date: 20151225
  Receipt Date: 20151225
  Transmission Date: 20160305
  Serious: Yes (Hospitalization, Other)
  Sender: FDA-Public Use
  Company Number: DE-AMGEN-DEUSP2015138133

PATIENT
  Age: 46 Year
  Sex: Male
  Weight: 76 kg

DRUGS (2)
  1. ENBREL [Suspect]
     Active Substance: ETANERCEPT
     Indication: PSORIASIS
     Dosage: 50 MG, WEEKLY SUNDAY MORNING
     Route: 058
     Dates: start: 20150514
  2. CELEBREX [Suspect]
     Active Substance: CELECOXIB
     Indication: PRODUCT USED FOR UNKNOWN INDICATION
     Dosage: 1-0-1
     Route: 065

REACTIONS (7)
  - Left ventricular hypertrophy [Unknown]
  - Scar [Unknown]
  - Skin ulcer [Unknown]
  - Anaphylactic shock [Recovered/Resolved]
  - Mitral valve incompetence [Unknown]
  - Labile hypertension [Unknown]
  - Tremor [Unknown]

NARRATIVE: CASE EVENT DATE: 20151115
